FAERS Safety Report 19240464 (Version 1)
Quarter: 2021Q2

REPORT INFORMATION
  Report Type: Spontaneous
  Country: TR (occurrence: TR)
  Receive Date: 20210511
  Receipt Date: 20210511
  Transmission Date: 20210717
  Serious: Yes (Other)
  Sender: FDA-Public Use
  Company Number: TR-TEVA-2021-TR-1909987

PATIENT
  Age: 55 Year
  Sex: Male

DRUGS (7)
  1. VINCRISTINE [Suspect]
     Active Substance: VINCRISTINE
     Indication: PLASMA CELL MYELOMA
     Dosage: FIRST LINE CHEMOTHERAPY ALONG WITH DOXORUBICIN AND DEXAMETHASONE FOR 4 CYCLES
     Route: 065
  2. DEXAMETHASONE. [Suspect]
     Active Substance: DEXAMETHASONE
     Indication: PLASMA CELL MYELOMA
     Dosage: FIRST LINE CHEMOTHERAPY ALONG WITH VINCRISTINE AND DOXORUBICIN FOR 4 CYCLES. ALSO GIVEN WITH THAL...
     Route: 065
  3. THALIDOMIDE [Suspect]
     Active Substance: THALIDOMIDE
     Indication: PLASMA CELL MYELOMA
     Dosage: SECOND LINE CHEMOTHERAPY ALONG WITH DEXAMETHASONE FOR 4 CYCLES
     Route: 065
  4. CYCLOPHOSPHAMIDE. [Suspect]
     Active Substance: CYCLOPHOSPHAMIDE
     Indication: HAEMATOPOIETIC STEM CELL MOBILISATION
     Dosage: GIVEN WITH ETOPOSIDE
     Route: 065
  5. MELPHALAN. [Suspect]
     Active Substance: MELPHALAN
     Indication: BONE MARROW CONDITIONING REGIMEN
     Route: 065
  6. ADRIAMYCIN [Suspect]
     Active Substance: DOXORUBICIN HYDROCHLORIDE
     Indication: PLASMA CELL MYELOMA
     Dosage: FIRST LINE CHEMOTHERAPY ALONG WITH VINCRISTINE AND DEXAMETHASONE FOR 4 CYCLES
     Route: 065
  7. ETOPOSIDE. [Suspect]
     Active Substance: ETOPOSIDE
     Indication: HAEMATOPOIETIC STEM CELL MOBILISATION
     Dosage: GIVEN WITH CYCLOPHOSPHAMIDE
     Route: 065

REACTIONS (1)
  - Hepatitis B reactivation [Recovered/Resolved]
